FAERS Safety Report 9223434 (Version 3)
Quarter: 2013Q2

REPORT INFORMATION
  Report Type: Spontaneous
  Country: BR (occurrence: BR)
  Receive Date: 20130410
  Receipt Date: 20130522
  Transmission Date: 20140414
  Serious: Yes (Other)
  Sender: FDA-Public Use
  Company Number: BR-LUNDBECK-DKLU1090099

PATIENT
  Age: 6 Year
  Sex: Male

DRUGS (3)
  1. ONFI [Suspect]
     Indication: NERVOUSNESS
     Route: 048
     Dates: start: 2011
  2. ONFI [Suspect]
     Indication: HYDROCEPHALUS
     Route: 048
     Dates: start: 2013
  3. TRILEPTAL [Concomitant]
     Indication: PRODUCT USED FOR UNKNOWN INDICATION
     Dates: start: 2008

REACTIONS (5)
  - Loss of consciousness [Recovering/Resolving]
  - Muscle spasms [Recovering/Resolving]
  - Nasopharyngitis [Recovered/Resolved]
  - Back pain [Recovered/Resolved]
  - Balance disorder [Recovering/Resolving]
